FAERS Safety Report 17178629 (Version 1)
Quarter: 2019Q4

REPORT INFORMATION
  Report Type: Spontaneous
  Country: US (occurrence: US)
  Receive Date: 20191219
  Receipt Date: 20191219
  Transmission Date: 20200122
  Serious: No
  Sender: FDA-Public Use
  Company Number: US-AUROBINDO-AUR-APL-2019-061507

PATIENT
  Sex: Female

DRUGS (2)
  1. DULOXETINE. [Concomitant]
     Active Substance: DULOXETINE
     Indication: PRODUCT USED FOR UNKNOWN INDICATION
     Dosage: UNK
     Route: 065
  2. ARMODAFINIL 250 MG TABLETS [Suspect]
     Active Substance: ARMODAFINIL
     Indication: FATIGUE
     Dosage: 1 DOSAGE FORM, DAILY
     Route: 065
     Dates: start: 20190815

REACTIONS (4)
  - Taste disorder [Recovered/Resolved]
  - Vomiting [Recovered/Resolved]
  - Product coating issue [Unknown]
  - Malaise [Recovered/Resolved]

NARRATIVE: CASE EVENT DATE: 20190815
